FAERS Safety Report 9606248 (Version 1)
Quarter: 2013Q4

REPORT INFORMATION
  Report Type: Spontaneous
  Country: US (occurrence: US)
  Receive Date: 20131008
  Receipt Date: 20131008
  Transmission Date: 20140711
  Serious: No
  Sender: FDA-Public Use
  Company Number: US-AMGEN-USASP2013045767

PATIENT
  Age: 82 Year
  Sex: Female

DRUGS (5)
  1. PROLIA [Suspect]
     Indication: OSTEOPOROSIS POSTMENOPAUSAL
     Dosage: 60 MG, Q6MO
     Dates: start: 201111
  2. ASPIRIN [Concomitant]
  3. PEPCID                             /00706001/ [Concomitant]
  4. ZOCOR [Concomitant]
  5. ATIVAN [Concomitant]

REACTIONS (1)
  - Incorrect drug administration duration [Unknown]
